FAERS Safety Report 4615332-1 (Version None)
Quarter: 2005Q1

REPORT INFORMATION
  Report Type: 
  Country: None (occurrence: None)
  Receive Date: 20050317
  Receipt Date: 20050308
  Transmission Date: 20050727
  Serious: Yes (Hospitalization)
  Sender: FDA-Public Use
  Company Number: 2005-03-0006

PATIENT
  Age: 73 Year
  Sex: Male
  Weight: 68 kg

DRUGS (18)
  1. CLARITIN [Suspect]
     Indication: INFLUENZA
     Dosage: 10 MG ORAL
     Route: 048
     Dates: start: 20050224, end: 20050225
  2. TAMIFLU [Concomitant]
  3. ALLOPURINOL [Concomitant]
  4. LANIRAPID [Concomitant]
  5. LASIX [Concomitant]
  6. ALDACTONE-A [Concomitant]
  7. DIOVAN [Concomitant]
  8. PRAVASTATIN SODIUM [Concomitant]
  9. SIGMART [Concomitant]
  10. ISOSORBIDE MONONITRATE [Concomitant]
  11. HARNAL (TAMSULOSIN HYDROCHLORIDE) [Concomitant]
  12. LENDORMIN TABLETS [Concomitant]
  13. MAGNESIUM OXIDE [Concomitant]
  14. BIOFERMIN R [Concomitant]
  15. MARZULENE S [Concomitant]
  16. GASTER ORAL POWDER ORAL [Concomitant]
  17. PURSENNID TABLETS [Concomitant]
  18. PANETHINE [Concomitant]

REACTIONS (7)
  - BLOOD CREATININE ABNORMAL [None]
  - DERMATITIS EXFOLIATIVE [None]
  - EOSINOPHIL COUNT ABNORMAL [None]
  - FACE OEDEMA [None]
  - HAEMOGLOBIN ABNORMAL [None]
  - LYMPHOCYTE COUNT ABNORMAL [None]
  - PLATELET COUNT ABNORMAL [None]
